FAERS Safety Report 13928396 (Version 1)
Quarter: 2017Q3

REPORT INFORMATION
  Report Type: Spontaneous
  Country: JP (occurrence: JP)
  Receive Date: 20170901
  Receipt Date: 20170901
  Transmission Date: 20171127
  Serious: Yes (Congenital Anomaly, Other)
  Sender: FDA-Public Use
  Company Number: JP-RECORDATI RARE DISEASES-JP-R13005-17-00192

PATIENT
  Sex: Male
  Weight: .55 kg

DRUGS (12)
  1. INDOCIN [Suspect]
     Active Substance: INDOMETHACIN
     Indication: PATENT DUCTUS ARTERIOSUS
  2. RESPIA [Suspect]
     Active Substance: CAFFEINE
     Indication: INFANTILE APNOEA
     Route: 042
     Dates: start: 20170328, end: 20170328
  3. KAYTWO N [Concomitant]
     Active Substance: MENATETRENONE
     Indication: PROPHYLAXIS
     Route: 042
     Dates: start: 20170327, end: 20170327
  4. RESPIA [Suspect]
     Active Substance: CAFFEINE
     Route: 042
     Dates: start: 20170329, end: 20170404
  5. AMIKACIN SULFATE. [Concomitant]
     Active Substance: AMIKACIN SULFATE
     Indication: PROPHYLAXIS
     Route: 065
     Dates: start: 20170327, end: 20170329
  6. BIO-THREE [Concomitant]
     Active Substance: HERBALS
     Indication: PROPHYLAXIS
     Route: 048
     Dates: start: 20170327, end: 20170613
  7. INDOCIN [Suspect]
     Active Substance: INDOMETHACIN
     Indication: PROPHYLAXIS
     Route: 042
     Dates: start: 20170327, end: 20170328
  8. SULBACILLIN [Concomitant]
     Active Substance: AMPICILLIN SODIUM\SULBACTAM SODIUM
     Indication: PROPHYLAXIS
     Route: 065
     Dates: start: 20170326, end: 20170329
  9. RESPIA [Suspect]
     Active Substance: CAFFEINE
     Route: 048
     Dates: start: 20170405, end: 20170704
  10. BIFIDOBACTERIUM COMBINED DRUG [Concomitant]
     Indication: PROPHYLAXIS
     Route: 048
     Dates: start: 20170327, end: 20170613
  11. HUMULIN R [Concomitant]
     Active Substance: INSULIN HUMAN
     Indication: PROPHYLAXIS
     Route: 065
     Dates: end: 20170328
  12. PRODIF [Concomitant]
     Active Substance: FOSFLUCONAZOLE
     Indication: PROPHYLAXIS
     Route: 065
     Dates: start: 20170327, end: 20170409

REACTIONS (7)
  - Pneumonia [Recovered/Resolved]
  - Intraventricular haemorrhage [Recovered/Resolved with Sequelae]
  - Developmental glaucoma [Recovering/Resolving]
  - Bronchopulmonary dysplasia [Recovering/Resolving]
  - Metabolic acidosis [Recovered/Resolved]
  - Off label use [Unknown]
  - Infantile apnoea [Unknown]

NARRATIVE: CASE EVENT DATE: 20170328
